FAERS Safety Report 12536536 (Version 5)
Quarter: 2017Q3

REPORT INFORMATION
  Report Type: Spontaneous
  Country: PR (occurrence: PR)
  Receive Date: 20160707
  Receipt Date: 20170904
  Transmission Date: 20171127
  Serious: Yes (Other)
  Sender: FDA-Public Use
  Company Number: PR-PFIZER INC-2016300048

PATIENT
  Age: 65 Year
  Sex: Female
  Weight: 72.56 kg

DRUGS (4)
  1. IBRANCE [Suspect]
     Active Substance: PALBOCICLIB
     Dosage: 75 MG, DAILY X 21 DAYS
     Route: 048
     Dates: start: 20160914
  2. IBRANCE [Suspect]
     Active Substance: PALBOCICLIB
     Dosage: 75 MG, CYCLIC (DAILY X 21)
     Route: 048
  3. IBRANCE [Suspect]
     Active Substance: PALBOCICLIB
     Dosage: 125 MG, CYCLIC (1 DF DAILY FOR 21DAYS)
     Route: 048
     Dates: start: 20160523, end: 20160612
  4. IBRANCE [Suspect]
     Active Substance: PALBOCICLIB
     Indication: BREAST CANCER
     Dosage: 125 MG, DAILY
     Route: 048
     Dates: start: 20160518

REACTIONS (6)
  - Abdominal discomfort [Unknown]
  - Dizziness [Unknown]
  - Influenza [Unknown]
  - Neutropenia [Unknown]
  - Gingival bleeding [Unknown]
  - Dyspepsia [Unknown]

NARRATIVE: CASE EVENT DATE: 20160611
